FAERS Safety Report 16810401 (Version 1)
Quarter: 2019Q3

REPORT INFORMATION
  Report Type: Spontaneous
  Country: US (occurrence: US)
  Receive Date: 20190916
  Receipt Date: 20190916
  Transmission Date: 20191005
  Serious: No
  Sender: FDA-Public Use
  Company Number: US-PFIZER INC-2019324128

PATIENT
  Age: 54 Year
  Sex: Female

DRUGS (1)
  1. LYRICA [Suspect]
     Active Substance: PREGABALIN
     Indication: NECK PAIN
     Dosage: 75 MG, 2X/DAY [1 CAP PO Q 12 ]
     Route: 048

REACTIONS (4)
  - Pain [Unknown]
  - Feeling drunk [Unknown]
  - Off label use [Unknown]
  - Product use in unapproved indication [Unknown]
